FAERS Safety Report 4478726-3 (Version None)
Quarter: 2004Q4

REPORT INFORMATION
  Report Type: 
  Country: None (occurrence: None)
  Receive Date: 20041019
  Receipt Date: 20040927
  Transmission Date: 20050328
  Serious: Yes (Life-Threatening, Hospitalization)
  Sender: FDA-Public Use
  Company Number: PHBS2004JP12793

PATIENT
  Age: 87 Year
  Sex: Female
  Weight: 54 kg

DRUGS (5)
  1. GLEEVEC [Suspect]
     Indication: CHRONIC MYELOID LEUKAEMIA
     Dosage: 400 MG, QD
     Route: 048
     Dates: start: 20030407, end: 20030501
  2. GLEEVEC [Suspect]
     Dosage: 300 MG/D
     Route: 048
     Dates: start: 20030501, end: 20030728
  3. LASIX [Concomitant]
     Dosage: 20 MG/D
     Route: 048
     Dates: start: 20030530
  4. ONE-ALPHA [Concomitant]
     Dosage: 1 MG/D
     Route: 048
     Dates: start: 20030530
  5. ZANTAC [Concomitant]
     Dosage: 150 MG/D
     Route: 048
     Dates: start: 20030609

REACTIONS (5)
  - DISSEMINATED INTRAVASCULAR COAGULATION [None]
  - DYSPNOEA EXERTIONAL [None]
  - HYPOXIA [None]
  - INTERSTITIAL LUNG DISEASE [None]
  - RASH GENERALISED [None]
